FAERS Safety Report 12673291 (Version 6)
Quarter: 2017Q1

REPORT INFORMATION
  Report Type: Spontaneous
  Country: US (occurrence: US)
  Receive Date: 20160822
  Receipt Date: 20170112
  Transmission Date: 20170428
  Serious: Yes (Death, Other)
  Sender: FDA-Public Use
  Company Number: US-PFIZER INC-2016391234

PATIENT
  Age: 58 Year
  Sex: Male
  Weight: 90.7 kg

DRUGS (3)
  1. MORPHINE SULFATE. [Concomitant]
     Active Substance: MORPHINE SULFATE
     Indication: PAIN
     Dosage: 30 MG, 2X/DAY
     Route: 048
  2. SUTENT [Suspect]
     Active Substance: SUNITINIB MALATE
     Indication: RENAL CANCER STAGE IV
     Dosage: 50 MG, CYCLIC (1 CAPSULE PER DAY FOR 14 DAYS AND THEN TAKE A WEEK OFF; 2WEEKS ON/1WEEK OFF)
     Dates: start: 20160729
  3. PERCOCET [Concomitant]
     Active Substance: ACETAMINOPHEN\OXYCODONE HYDROCHLORIDE
     Indication: PAIN
     Dosage: 2 DF, DAILY
     Route: 048

REACTIONS (9)
  - Pleural effusion [Not Recovered/Not Resolved]
  - Fatigue [Not Recovered/Not Resolved]
  - Ageusia [Not Recovered/Not Resolved]
  - Ascites [Unknown]
  - Neoplasm progression [Unknown]
  - Weight decreased [Not Recovered/Not Resolved]
  - Death [Fatal]
  - Peripheral swelling [Unknown]
  - Decreased appetite [Not Recovered/Not Resolved]
